FAERS Safety Report 18115968 (Version 1)
Quarter: 2020Q3

REPORT INFORMATION
  Report Type: Report from Study
  Country: US (occurrence: US)
  Receive Date: 20200806
  Receipt Date: 20200806
  Transmission Date: 20201103
  Serious: Yes (Hospitalization)
  Sender: FDA-Public Use
  Company Number: US-EMD SERONO-9178908

PATIENT
  Age: 67 Year
  Sex: Female

DRUGS (2)
  1. REBIF [Suspect]
     Active Substance: INTERFERON BETA-1A
     Indication: MULTIPLE SCLEROSIS
     Route: 058
     Dates: start: 2013
  2. REBIF [Suspect]
     Active Substance: INTERFERON BETA-1A
     Dosage: RESTARTED TAKING REBIF
     Route: 058

REACTIONS (3)
  - Nephrolithiasis [Unknown]
  - Sepsis [Unknown]
  - Arthropod bite [Unknown]
